FAERS Safety Report 4615924-X (Version None)
Quarter: 2005Q1

REPORT INFORMATION
  Report Type: 
  Country: None (occurrence: None)
  Receive Date: 20050318
  Receipt Date: 20050308
  Transmission Date: 20050727
  Serious: Yes (Hospitalization, Other)
  Sender: FDA-Public Use
  Company Number: 2005042792

PATIENT
  Age: 19 Year
  Sex: Female

DRUGS (6)
  1. CLINDAMYCIN PHOSPHATE [Suspect]
     Indication: ACUTE TONSILLITIS
     Dosage: 2400 MG (600 MG, QID INTERVAL: EVERY DAY), INTRAVENOUS
     Route: 042
     Dates: start: 20050215, end: 20050221
  2. WARFARIN (WARFARIN) [Suspect]
     Indication: PULMONARY EMBOLISM
     Dosage: 4 MG (QD), ORAL
     Route: 048
  3. TACROLIMUS (TACROLIMUS) [Concomitant]
  4. AZATHIOPRINE [Concomitant]
  5. PREDNISONE [Concomitant]
  6. RANITIDINE [Concomitant]

REACTIONS (1)
  - INTERNATIONAL NORMALISED RATIO INCREASED [None]
